FAERS Safety Report 4841312-7 (Version None)
Quarter: 2005Q4

REPORT INFORMATION
  Report Type: 
  Country: None (occurrence: None)
  Receive Date: 20051130
  Receipt Date: 20051122
  Transmission Date: 20060501
  Serious: Yes (Other)
  Sender: FDA-Public Use
  Company Number: US-GLAXOSMITHKLINE-A0583469A

PATIENT
  Age: 42 Year
  Sex: Male

DRUGS (10)
  1. EPIVIR [Suspect]
     Indication: HIV INFECTION
     Dosage: 1TAB PER DAY
     Route: 048
     Dates: end: 20051108
  2. NICOTINIC ACID [Concomitant]
  3. FUZEON [Concomitant]
  4. KALETRA [Concomitant]
  5. VIREAD [Concomitant]
  6. FISH OIL [Concomitant]
  7. IRON [Concomitant]
  8. VITAMIN E [Concomitant]
  9. ALPHALIPOIC ACID [Concomitant]
  10. MULTI-VITAMIN [Concomitant]

REACTIONS (10)
  - ABASIA [None]
  - BLOOD INSULIN DECREASED [None]
  - BRAIN DAMAGE [None]
  - DYSPHEMIA [None]
  - HIGH DENSITY LIPOPROTEIN DECREASED [None]
  - HYPOAESTHESIA [None]
  - LABORATORY TEST ABNORMAL [None]
  - NERVE INJURY [None]
  - NEUROPATHY [None]
  - SENSORY LOSS [None]
